FAERS Safety Report 14266285 (Version 1)
Quarter: 2017Q4

REPORT INFORMATION
  Report Type: Spontaneous
  Country: US (occurrence: US)
  Receive Date: 20171210
  Receipt Date: 20171210
  Transmission Date: 20180321
  Serious: No
  Sender: FDA-Public Use
  Company Number: US-009507513-1711USA006127

PATIENT
  Age: 25 Year
  Sex: Female

DRUGS (2)
  1. DEPO-PROVERA [Suspect]
     Active Substance: MEDROXYPROGESTERONE ACETATE
  2. NEXPLANON [Suspect]
     Active Substance: ETONOGESTREL
     Dosage: UNK
     Route: 059
     Dates: start: 20171108, end: 20171113

REACTIONS (5)
  - Implant site warmth [Recovering/Resolving]
  - Pain in extremity [Recovering/Resolving]
  - Implant site inflammation [Recovering/Resolving]
  - Implant site erythema [Recovering/Resolving]
  - Implant site swelling [Recovering/Resolving]

NARRATIVE: CASE EVENT DATE: 20171110
